FAERS Safety Report 7173407-X (Version None)
Quarter: 2010Q4

REPORT INFORMATION
  Report Type: 
  Country: None (occurrence: None)
  Receive Date: 20101219
  Receipt Date: 20100227
  Transmission Date: 20110411
  Serious: No
  Sender: FDA-Public Use
  Company Number: US-AMGEN-KDL395885

PATIENT

DRUGS (4)
  1. ENBREL [Suspect]
     Indication: RHEUMATOID ARTHRITIS
     Dosage: 50 MG, QWK
     Route: 058
     Dates: start: 20100212
  2. ENBREL [Suspect]
     Indication: ANKYLOSING SPONDYLITIS
  3. SULFASALAZINE [Concomitant]
     Dosage: 500 MG, BID
     Dates: start: 20091225
  4. METHOTREXATE [Concomitant]
     Dosage: 2.5 MG, QWK
     Route: 048
     Dates: start: 20090701

REACTIONS (5)
  - ARTHRALGIA [None]
  - BACK PAIN [None]
  - INJECTION SITE PAIN [None]
  - NECK PAIN [None]
  - PAIN [None]
